FAERS Safety Report 10625449 (Version 1)
Quarter: 2014Q4

REPORT INFORMATION
  Report Type: Spontaneous
  Country: US (occurrence: US)
  Receive Date: 20141204
  Receipt Date: 20141204
  Transmission Date: 20150529
  Serious: Yes (Hospitalization, Other)
  Sender: FDA-Public Use
  Company Number: US-JNJFOC-20141117510

PATIENT
  Sex: Female
  Weight: 72.58 kg

DRUGS (7)
  1. XARELTO [Suspect]
     Active Substance: RIVAROXABAN
     Indication: ATRIAL FIBRILLATION
     Route: 048
     Dates: start: 201408
  2. COLCHICINE. [Concomitant]
     Active Substance: COLCHICINE
     Indication: CARDITIS
     Dosage: AS NEEDED
     Route: 065
     Dates: start: 201405
  3. CLONAZEPAM. [Concomitant]
     Active Substance: CLONAZEPAM
     Indication: ANXIETY
     Dosage: AS NEEDED
     Route: 048
  4. SYNTHROID [Concomitant]
     Active Substance: LEVOTHYROXINE SODIUM
     Indication: THYROID DISORDER
     Dosage: AS NEEDED
     Route: 065
     Dates: start: 2014
  5. XARELTO [Suspect]
     Active Substance: RIVAROXABAN
     Indication: CEREBROVASCULAR ACCIDENT PROPHYLAXIS
     Route: 048
     Dates: start: 201408
  6. COLCHICINE. [Concomitant]
     Active Substance: COLCHICINE
     Indication: PNEUMONITIS
     Dosage: AS NEEDED
     Route: 065
     Dates: start: 201405
  7. OXYCODONE [Concomitant]
     Active Substance: OXYCODONE
     Indication: PAIN
     Dosage: AS NEEDED
     Route: 048
     Dates: start: 20141027

REACTIONS (8)
  - Cataract [Not Recovered/Not Resolved]
  - Pain in extremity [Not Recovered/Not Resolved]
  - Cholelithiasis [Recovered/Resolved]
  - Atrial fibrillation [Unknown]
  - Depression [Not Recovered/Not Resolved]
  - Back pain [Not Recovered/Not Resolved]
  - Chest pain [Unknown]
  - Blood disorder [Unknown]

NARRATIVE: CASE EVENT DATE: 2014
